FAERS Safety Report 4332461-0 (Version None)
Quarter: 2004Q2

REPORT INFORMATION
  Report Type: 
  Country: None (occurrence: None)
  Receive Date: 20040401
  Receipt Date: 20040331
  Transmission Date: 20050107
  Serious: Yes (Hospitalization)
  Sender: FDA-Public Use
  Company Number: DEWYE117805MAY03

PATIENT
  Age: 40 Year
  Sex: Female

DRUGS (9)
  1. SIROLIMUS (SIROLIMUS, TABLET, 0) [Suspect]
     Indication: RENAL TRANSPLANT
     Dosage: 2 MG 1X PER 1 DAY
     Route: 048
     Dates: start: 20021129, end: 20030325
  2. METOPROLOL SUCCINATE [Concomitant]
  3. FUROSEMIDE [Concomitant]
  4. REDUCTO (POTASSIUM PHOSPHATE MONOBASIC/SODIUM PHOSPHATE) [Concomitant]
  5. PANTOZOL (PANTOPRAZOLE SODIUM) [Concomitant]
  6. METOPROLOL (METOPROLOL) [Concomitant]
  7. MARCUMAR [Concomitant]
  8. LEVOTHYROXINE SODIUM [Concomitant]
  9. COTRIM FORTE-RATIOPHARM (SULFAMETHOXAZOLE/TRIMETHOPRIM) [Concomitant]

REACTIONS (8)
  - ANAEMIA [None]
  - DIABETES MELLITUS [None]
  - DIARRHOEA [None]
  - DISEASE RECURRENCE [None]
  - DIVERTICULITIS [None]
  - NEPHROCALCINOSIS [None]
  - RENAL TUBULAR DISORDER [None]
  - RESPIRATORY DISORDER [None]
